FAERS Safety Report 7655973-0 (Version None)
Quarter: 2011Q3

REPORT INFORMATION
  Report Type: 
  Country: None (occurrence: None)
  Receive Date: 20110801
  Receipt Date: 20110719
  Transmission Date: 20111222
  Serious: Yes (Life-Threatening)
  Sender: FDA-Public Use
  Company Number: DSA_47247_2011

PATIENT
  Sex: Male

DRUGS (6)
  1. BUPROPION HYDROCHLORIDE [Suspect]
     Indication: MAJOR DEPRESSION
     Dosage: DF ORAL
     Route: 048
     Dates: start: 20110329, end: 20110410
  2. ESCITALOPRAM [Concomitant]
  3. LORAZEPAM [Concomitant]
  4. PROPAFENONE HCL [Concomitant]
  5. COUMADIN [Concomitant]
  6. ALPRAZOLAM [Concomitant]

REACTIONS (4)
  - SUICIDE ATTEMPT [None]
  - SUBCUTANEOUS EMPHYSEMA [None]
  - INTENTIONAL SELF-INJURY [None]
  - STAB WOUND [None]
